FAERS Safety Report 7039155-1 (Version None)
Quarter: 2010Q4

REPORT INFORMATION
  Report Type: 
  Country: None (occurrence: None)
  Receive Date: 20101012
  Receipt Date: 20101001
  Transmission Date: 20110411
  Serious: Yes (Hospitalization)
  Sender: FDA-Public Use
  Company Number: PHHY2010JP66241

PATIENT
  Age: 35 Year
  Sex: Female

DRUGS (2)
  1. TEGRETOL [Suspect]
     Indication: TRIGEMINAL NEURALGIA
     Dosage: 200 MG DAILY
     Route: 048
     Dates: start: 20100831, end: 20100922
  2. CLARITHROMYCIN [Suspect]
     Dosage: 400 MG DAILY
     Route: 048
     Dates: start: 20100907, end: 20100921

REACTIONS (4)
  - DRUG ERUPTION [None]
  - DRUG RASH WITH EOSINOPHILIA AND SYSTEMIC SYMPTOMS [None]
  - ERYTHEMA [None]
  - PAIN [None]
